FAERS Safety Report 19513036 (Version 1)
Quarter: 2021Q3

REPORT INFORMATION
  Report Type: Spontaneous
  Country: US (occurrence: US)
  Receive Date: 20210709
  Receipt Date: 20210709
  Transmission Date: 20211014
  Serious: Yes (Death)
  Sender: FDA-Public Use
  Company Number: US-ROCHE-2866996

PATIENT
  Age: 83 Year
  Sex: Male

DRUGS (9)
  1. DUTASTERIDE. [Concomitant]
     Active Substance: DUTASTERIDE
  2. METOPROLOL SUCCINATE ER [Concomitant]
     Active Substance: METOPROLOL SUCCINATE
  3. ATORVASTATIN CALCIUM. [Concomitant]
     Active Substance: ATORVASTATIN CALCIUM
  4. DIGOXIN. [Concomitant]
     Active Substance: DIGOXIN
  5. PANTOPRAZOLE SODIUM. [Concomitant]
     Active Substance: PANTOPRAZOLE SODIUM
  6. ESBRIET [Suspect]
     Active Substance: PIRFENIDONE
     Indication: TYPE IIA HYPERLIPIDAEMIA
     Route: 048
  7. CLOPIDOGREL BISULFATE. [Concomitant]
     Active Substance: CLOPIDOGREL BISULFATE
  8. GABAPENTIN. [Concomitant]
     Active Substance: GABAPENTIN
  9. AMLODIPIN BESILAT [Concomitant]
     Active Substance: AMLODIPINE BESYLATE

REACTIONS (1)
  - Death [Fatal]

NARRATIVE: CASE EVENT DATE: 20210701
